FAERS Safety Report 23166121 (Version 1)
Quarter: 2023Q4

REPORT INFORMATION
  Report Type: Spontaneous
  Country: US (occurrence: US)
  Receive Date: 20231109
  Receipt Date: 20231109
  Transmission Date: 20240110
  Serious: Yes (Other)
  Sender: FDA-Public Use
  Company Number: US-PFIZER INC-PV202300134794

PATIENT
  Age: 82 Year
  Sex: Female

DRUGS (3)
  1. BOSULIF [Suspect]
     Active Substance: BOSUTINIB MONOHYDRATE
     Indication: Chronic myeloid leukaemia
     Dosage: 300 MG [Q(EVERY) 28 DAY]
     Dates: start: 20220916, end: 20221001
  2. BOSULIF [Suspect]
     Active Substance: BOSUTINIB MONOHYDRATE
     Dosage: 300 MG, DAILY WITH BREAKFAST
     Route: 048
     Dates: start: 20221001
  3. BOSULIF [Suspect]
     Active Substance: BOSUTINIB MONOHYDRATE
     Dosage: 300 MG, DAILY
     Route: 048
     Dates: start: 20230201

REACTIONS (16)
  - Atrial fibrillation [Unknown]
  - Cerebral infarction [Unknown]
  - Nervous system disorder [Unknown]
  - Cardiac disorder [Unknown]
  - Asthenia [Unknown]
  - Performance status decreased [Unknown]
  - Laboratory test abnormal [Unknown]
  - Fatigue [Unknown]
  - Alopecia [Unknown]
  - Pain [Unknown]
  - Peripheral swelling [Unknown]
  - Diarrhoea [Unknown]
  - Arthralgia [Unknown]
  - Hyperuricaemia [Unknown]
  - Blood magnesium decreased [Unknown]
  - Arthritis [Unknown]
